FAERS Safety Report 6033520-7 (Version None)
Quarter: 2009Q1

REPORT INFORMATION
  Report Type: 
  Country: None (occurrence: None)
  Receive Date: 20090109
  Receipt Date: 20081230
  Transmission Date: 20090719
  Serious: No
  Sender: FDA-Public Use
  Company Number: US-B.I. PHARMACEUTICALS,INC./RIDGEFIELD-2008-BP-18064BP

PATIENT
  Sex: Female

DRUGS (7)
  1. SPIRIVA [Suspect]
     Indication: DYSPNOEA
     Dosage: 18MCG
     Route: 055
     Dates: start: 20051101
  2. SPIRIVA [Suspect]
     Indication: CHRONIC OBSTRUCTIVE PULMONARY DISEASE
  3. TOPROL-XL [Concomitant]
     Indication: HEART RATE INCREASED
     Route: 048
     Dates: start: 20000101
  4. FISH OIL [Concomitant]
     Indication: PROPHYLAXIS
     Route: 048
  5. FLAX MEAL [Concomitant]
     Indication: PROPHYLAXIS
     Route: 048
  6. ZETIA [Concomitant]
  7. TRICOR [Concomitant]

REACTIONS (4)
  - DIPLOPIA [None]
  - HYPOTHYROIDISM [None]
  - MUSCLE DISORDER [None]
  - VISION BLURRED [None]
